FAERS Safety Report 4554781-7 (Version None)
Quarter: 2004Q4

REPORT INFORMATION
  Report Type: 
  Country: None (occurrence: None)
  Receive Date: 20041227
  Receipt Date: 20041101
  Transmission Date: 20050328
  Serious: No
  Sender: FDA-Public Use
  Company Number: 2004-0007323

PATIENT
  Age: 58 Year
  Sex: Male

DRUGS (4)
  1. VIREAD [Suspect]
     Indication: HIV INFECTION
     Dates: start: 20000101
  2. PROTONIX [Suspect]
     Indication: GASTROOESOPHAGEAL REFLUX DISEASE
     Dates: start: 20040601
  3. TRIZIVIR [Concomitant]
  4. LEVAQUIN [Concomitant]

REACTIONS (3)
  - BLOOD HIV RNA INCREASED [None]
  - DRUG INTERACTION INHIBITION [None]
  - VIRAL LOAD INCREASED [None]
